FAERS Safety Report 4308905-7 (Version None)
Quarter: 2004Q1

REPORT INFORMATION
  Report Type: 
  Country: None (occurrence: None)
  Receive Date: 20040302
  Receipt Date: 20040220
  Transmission Date: 20041129
  Serious: Yes (Other)
  Sender: FDA-Public Use
  Company Number: PHBS2004CH02480

PATIENT
  Age: 58 Year
  Sex: Male

DRUGS (4)
  1. LESCOL [Suspect]
     Dosage: 40 MG/DAY
     Dates: start: 20030902, end: 20031128
  2. AVANDIA [Suspect]
     Dosage: 4 MG/DAY
     Dates: start: 20030527, end: 20031128
  3. TENORMIN [Concomitant]
     Dosage: 50 MG/DAY
     Dates: end: 20031128
  4. COZAAR [Concomitant]
     Dosage: LOSRA 50 / HCT 12.5 MG/DAY
     Dates: end: 20031128

REACTIONS (8)
  - ALANINE AMINOTRANSFERASE INCREASED [None]
  - ASPARTATE AMINOTRANSFERASE INCREASED [None]
  - BLOOD ALKALINE PHOSPHATASE INCREASED [None]
  - BLOOD BILIRUBIN INCREASED [None]
  - DRUG INTERACTION [None]
  - GAMMA-GLUTAMYLTRANSFERASE INCREASED [None]
  - HEPATIC ENZYME INCREASED [None]
  - PYREXIA [None]
